FAERS Safety Report 6885830-9 (Version None)
Quarter: 2010Q3

REPORT INFORMATION
  Report Type: 
  Country: None (occurrence: None)
  Receive Date: 20100729
  Receipt Date: 20090213
  Transmission Date: 20110219
  Serious: Yes (Other)
  Sender: FDA-Public Use
  Company Number: US-PFIZER INC-2008155112

PATIENT
  Sex: Male
  Weight: 77.098 kg

DRUGS (2)
  1. CELEBREX [Suspect]
     Indication: ARTHRITIS
     Dates: start: 20020101, end: 20060101
  2. PAXIL [Concomitant]
     Dosage: 20 MG, 1X/DAY

REACTIONS (2)
  - GASTRIC ULCER [None]
  - HAEMATEMESIS [None]
